FAERS Safety Report 8912078 (Version 1)
Quarter: 2012Q4

REPORT INFORMATION
  Report Type: 
  Country: US (occurrence: US)
  Receive Date: 20121116
  Receipt Date: 20121116
  Transmission Date: 20130627
  Serious: Yes (Other)
  Sender: FDA-Public Use
  Company Number: US-PFIZER INC-2005040885

PATIENT
  Age: 17 Year
  Sex: Male

DRUGS (6)
  1. IBUPROFEN [Suspect]
     Indication: CYSTIC FIBROSIS
     Dosage: 1000 mg, 2x/day
     Route: 048
  2. IBUPROFEN [Suspect]
     Route: 048
  3. PANCRELIPASE [Suspect]
     Indication: CYSTIC FIBROSIS
     Dosage: UNSPECIFIED
     Route: 065
  4. ANTIBIOTICS [Suspect]
     Indication: DRUG USE FOR UNKNOWN INDICATION
     Dosage: UNSPECIFIED
     Route: 048
  5. ANTIBIOTICS [Suspect]
     Route: 048
  6. VITAMINS [Suspect]
     Indication: DRUG USE FOR UNKNOWN INDICATION
     Dosage: UNSPECIFIED
     Route: 048

REACTIONS (2)
  - Oesophageal ulcer [Recovered/Resolved]
  - Gastrointestinal haemorrhage [Recovered/Resolved]
